FAERS Safety Report 7086231-3 (Version None)
Quarter: 2010Q4

REPORT INFORMATION
  Report Type: 
  Country: None (occurrence: None)
  Receive Date: 20101028
  Receipt Date: 20101014
  Transmission Date: 20110411
  Serious: Yes (Other)
  Sender: FDA-Public Use
  Company Number: 2010-3501

PATIENT
  Age: 59 Year
  Sex: Female

DRUGS (9)
  1. DYSPORT [Suspect]
     Indication: BLEPHAROSPASM
     Dosage: (SINGLE CYCLE)
     Dates: start: 20100204, end: 20100204
  2. DYSPORT [Suspect]
     Indication: MEIGE'S SYNDROME
     Dosage: (SINGLE CYCLE)
     Dates: start: 20100204, end: 20100204
  3. DYSPORT [Suspect]
     Indication: OFF LABEL USE
     Dosage: (SINGLE CYCLE)
     Dates: start: 20100204, end: 20100204
  4. PROCYCLIDINE HYDROCHLORIDE 2MG TAB [Suspect]
     Indication: DYSTONIA
     Dosage: 7.5 MG (2.5 MG,3 IN 1 D),ORAL ; 5 MG (5 MG,1 IN 1 D),ORAL ;  15 MG (5 MG,3 IN 1 D),ORAL
     Route: 048
     Dates: start: 20100826
  5. PROCYCLIDINE HYDROCHLORIDE 2MG TAB [Suspect]
     Indication: DYSTONIA
     Dosage: 7.5 MG (2.5 MG,3 IN 1 D),ORAL ; 5 MG (5 MG,1 IN 1 D),ORAL ;  15 MG (5 MG,3 IN 1 D),ORAL
     Route: 048
     Dates: start: 20100829
  6. ACCILOVIR (ACICLOVIR) [Concomitant]
  7. IBUPROFEN [Concomitant]
  8. NASONEX [Concomitant]
  9. ACETAMINOPHEN [Concomitant]

REACTIONS (6)
  - CARDIAC FLUTTER [None]
  - DIZZINESS [None]
  - DRUG INTERACTION [None]
  - FEELING ABNORMAL [None]
  - MALAISE [None]
  - PALPITATIONS [None]
